FAERS Safety Report 9871011 (Version 2)
Quarter: 2014Q1

REPORT INFORMATION
  Report Type: Spontaneous
  Country: US (occurrence: None)
  Receive Date: 20140203
  Receipt Date: 20140218
  Transmission Date: 20141002
  Serious: Yes (Other)
  Sender: FDA-Public Use
  Company Number: KAD201401-000122

PATIENT
  Age: 26 Year
  Sex: Female

DRUGS (3)
  1. RIBAVIRIN [Suspect]
     Indication: CHRONIC HEPATITIS C
  2. PEGINTERFERON LAMBDA [Suspect]
     Indication: CHRONIC HEPATITIS C
  3. BMS 650032 (ASUNAPREVIR) [Suspect]

REACTIONS (9)
  - Alanine aminotransferase increased [None]
  - Blood bilirubin increased [None]
  - Nausea [None]
  - Decreased appetite [None]
  - Fatigue [None]
  - Aspartate aminotransferase increased [None]
  - Somnolence [None]
  - Fatigue [None]
  - Hypersomnia [None]
